FAERS Safety Report 4271944-9 (Version None)
Quarter: 2004Q1

REPORT INFORMATION
  Report Type: 
  Country: None (occurrence: None)
  Receive Date: 20040113
  Receipt Date: 20040107
  Transmission Date: 20041129
  Serious: Yes (Hospitalization)
  Sender: FDA-Public Use
  Company Number: DEWYE499408JAN04

PATIENT
  Age: 52 Year
  Sex: Male

DRUGS (18)
  1. LORAZEPAM [Suspect]
     Dosage: SEE IMAGE
     Route: 048
     Dates: start: 20030821, end: 20030910
  2. LORAZEPAM [Suspect]
     Dosage: SEE IMAGE
     Route: 048
     Dates: start: 20030911, end: 20030915
  3. LORAZEPAM [Suspect]
     Dosage: SEE IMAGE
     Route: 048
     Dates: start: 29930916, end: 20030928
  4. LORAZEPAM [Suspect]
     Dosage: SEE IMAGE
     Route: 048
     Dates: start: 20031007, end: 20031016
  5. LORAZEPAM [Suspect]
     Dosage: SEE IMAGE
     Route: 048
     Dates: start: 20031017
  6. BELOC ZOK (METOPROLOL SUCCINATE, , 0) [Suspect]
     Dosage: 47.5  + 95MG 1X PER 1 DAY ORAL
     Route: 048
     Dates: start: 20030913, end: 20030918
  7. BELOC ZOK (METOPROLOL SUCCINATE, , 0) [Suspect]
     Dosage: 47.5  + 95MG 1X PER 1 DAY ORAL
     Route: 048
     Dates: start: 20030919
  8. MIRTAZAPINE [Suspect]
     Dosage: 15 + 45 MG 1 X PER 1 DAY ORAL
     Route: 048
     Dates: start: 20030821, end: 20030903
  9. MIRTAZAPINE [Suspect]
     Dosage: 15 + 45 MG 1 X PER 1 DAY ORAL
     Route: 048
     Dates: start: 20000904
  10. RISPERDAL [Suspect]
     Dosage: 2 MG 1X PER 1 DAY ORAL
     Route: 048
     Dates: start: 20030821
  11. VENLAFAXINE HCL [Suspect]
     Dosage: SEE IMAGE
     Route: 048
     Dates: start: 20030922, end: 20030923
  12. VENLAFAXINE HCL [Suspect]
     Dosage: SEE IMAGE
     Route: 048
     Dates: start: 20030924, end: 20030929
  13. VENLAFAXINE HCL [Suspect]
     Dosage: SEE IMAGE
     Route: 048
     Dates: start: 20030930, end: 20031006
  14. VENLAFAXINE HCL [Suspect]
     Dosage: SEE IMAGE
     Route: 048
     Dates: start: 20031007, end: 20031008
  15. VENLAFAXINE HCL [Suspect]
     Dosage: SEE IMAGE
     Route: 048
     Dates: start: 20031009, end: 20031014
  16. VENLAFAXINE HCL [Suspect]
     Dosage: SEE IMAGE
     Route: 048
     Dates: start: 20031015, end: 20031026
  17. QUILONUM - SLOW RELEASE (LITHIUM CARBONATE) [Concomitant]
  18. CHLORALDURAT (CHLORAL HYDRATE) [Concomitant]

REACTIONS (4)
  - ALANINE AMINOTRANSFERASE INCREASED [None]
  - DRUG INTERACTION [None]
  - GAMMA-GLUTAMYLTRANSFERASE INCREASED [None]
  - HEPATIC ENZYME INCREASED [None]
